FAERS Safety Report 11347148 (Version 3)
Quarter: 2016Q1

REPORT INFORMATION
  Report Type: Spontaneous
  Country: US (occurrence: US)
  Receive Date: 20150806
  Receipt Date: 20160130
  Transmission Date: 20160525
  Serious: No
  Sender: FDA-Public Use
  Company Number: US-FRESENIUS KABI-FK201500915

PATIENT
  Sex: Male

DRUGS (2)
  1. CYANOCOBALAMIN INJECTION, USP [Suspect]
     Active Substance: CYANOCOBALAMIN
     Indication: MALABSORPTION
     Route: 058
  2. CYANOCOBALAMIN INJECTION, USP [Suspect]
     Active Substance: CYANOCOBALAMIN
     Route: 058

REACTIONS (2)
  - Injection site pain [Recovered/Resolved]
  - Injection site pain [Recovering/Resolving]
